FAERS Safety Report 16607644 (Version 1)
Quarter: 2019Q3

REPORT INFORMATION
  Report Type: Spontaneous
  Country: US (occurrence: US)
  Receive Date: 20190722
  Receipt Date: 20190722
  Transmission Date: 20191004
  Serious: No
  Sender: FDA-Public Use
  Company Number: US-TEVA-2019-US-1078136

PATIENT
  Sex: Female

DRUGS (3)
  1. PROPRANOLOL HCL SARTAN [Concomitant]
     Indication: BLOOD PRESSURE MEASUREMENT
  2. PROPRANOLOL HCL ACTAVIS [Suspect]
     Active Substance: PROPRANOLOL HYDROCHLORIDE
     Indication: BLOOD PRESSURE MEASUREMENT
     Dosage: TOOK 1 TABLET AT NIGHT
     Route: 065
     Dates: start: 20190709
  3. PROPRANOLOL HCL IMPAX [Suspect]
     Active Substance: PROPRANOLOL HYDROCHLORIDE
     Indication: BLOOD PRESSURE MEASUREMENT
     Dosage: TOOK 1 TABLET AT NIGHT
     Dates: start: 20190709

REACTIONS (5)
  - Dizziness [Unknown]
  - Vision blurred [Unknown]
  - Blood pressure increased [Unknown]
  - Confusional state [Unknown]
  - Product substitution issue [Unknown]

NARRATIVE: CASE EVENT DATE: 20190709
